FAERS Safety Report 9627116 (Version 2)
Quarter: 2013Q4

REPORT INFORMATION
  Report Type: Spontaneous
  Country: ES (occurrence: ES)
  Receive Date: 20131016
  Receipt Date: 20131016
  Transmission Date: 20140711
  Serious: Yes (Other)
  Sender: FDA-Public Use
  Company Number: ES-WATSON-2013-17305

PATIENT
  Age: 56 Year
  Sex: Female
  Weight: 67 kg

DRUGS (10)
  1. KETAMINE (UNKNOWN) [Suspect]
     Indication: OFF LABEL USE
     Dosage: 0.3 MG/KG, 90 MINUTES INFUSION, IN THE MORNING
     Route: 042
  2. KETAMINE (UNKNOWN) [Interacting]
     Indication: PILONIDAL SINUS REPAIR
     Dosage: 0.5 MG/KG, UNK
     Route: 042
  3. PREGABALIN (UNKNOWN) [Interacting]
     Indication: MAJOR DEPRESSION
     Dosage: 600 MG, DAILY
     Route: 065
  4. AMITRIPTYLINE [Interacting]
     Indication: MAJOR DEPRESSION
     Dosage: 25 MG, DAILY
     Route: 065
  5. DIAZEPAM (UNKNOWN) [Interacting]
     Indication: MAJOR DEPRESSION
     Dosage: 10 MG, DAILY
     Route: 065
  6. PAROXETINE HYDROCHLORIDE (UNKNOWN) [Interacting]
     Indication: DEPRESSION
     Dosage: 40 MG, DAILY
     Route: 065
  7. PARACETAMOL [Concomitant]
     Indication: PAIN
     Dosage: 3000 MG, DAILY
     Route: 065
  8. HYDROMORPHONE [Concomitant]
     Indication: PAIN
     Dosage: 32 MG, DAILY
  9. HYDROMORPHONE [Concomitant]
     Dosage: 64 MG DAILY
     Route: 065
  10. FENTANYL [Concomitant]
     Indication: PAIN
     Dosage: 64 MG, DAILY
     Route: 048

REACTIONS (5)
  - Confusional state [Recovered/Resolved]
  - Dizziness [Recovered/Resolved]
  - Therapeutic response unexpected [Unknown]
  - Off label use [Unknown]
  - Drug interaction [Unknown]
